FAERS Safety Report 6298183-4 (Version None)
Quarter: 2009Q3

REPORT INFORMATION
  Report Type: 
  Country: None (occurrence: None)
  Receive Date: 20090805
  Receipt Date: 20090722
  Transmission Date: 20100115
  Serious: Yes (Other)
  Sender: FDA-Public Use
  Company Number: AU-MYLANLABS-2009S1012961

PATIENT
  Age: 18 Year
  Sex: Female

DRUGS (14)
  1. LOVAN [Suspect]
     Indication: FIBROMYALGIA
     Route: 048
     Dates: start: 20070101, end: 20090623
  2. LOVAN [Suspect]
     Indication: DEPRESSION
     Route: 048
     Dates: start: 20070101, end: 20090623
  3. LOVAN [Suspect]
     Route: 048
     Dates: start: 20090624, end: 20090703
  4. LOVAN [Suspect]
     Route: 048
     Dates: start: 20090624, end: 20090703
  5. LOVAN [Suspect]
     Route: 048
     Dates: start: 20090704, end: 20090713
  6. LOVAN [Suspect]
     Route: 048
     Dates: start: 20090704, end: 20090713
  7. LOVAN [Suspect]
     Route: 048
     Dates: start: 20090714
  8. LOVAN [Suspect]
     Route: 048
     Dates: start: 20090714
  9. SANDOMIGRAN [Concomitant]
     Indication: MIGRAINE PROPHYLAXIS
  10. LEVOTHYROXINE SODIUM [Concomitant]
  11. SERETIDE [Concomitant]
     Indication: ASTHMA
  12. YASMIN [Concomitant]
  13. FOLIC ACID [Concomitant]
  14. METAMUCIL /00091301/ [Concomitant]
     Indication: CONSTIPATION

REACTIONS (8)
  - DISORIENTATION [None]
  - EYE MOVEMENT DISORDER [None]
  - HEAD DISCOMFORT [None]
  - LYMPHADENOPATHY [None]
  - OROPHARYNGEAL PAIN [None]
  - ORTHOPNOEA [None]
  - SPEECH DISORDER [None]
  - TONGUE DISORDER [None]
